FAERS Safety Report 8294628-9 (Version None)
Quarter: 2012Q2

REPORT INFORMATION
  Report Type: 
  Country: None (occurrence: None)
  Receive Date: 20120418
  Receipt Date: 20120416
  Transmission Date: 20120825
  Serious: Yes (Other)
  Sender: FDA-Public Use
  Company Number: JP-PFIZER INC-2012084552

PATIENT
  Age: 56 Year
  Sex: Male
  Weight: 73 kg

DRUGS (2)
  1. LEUCOVORIN CALCIUM [Concomitant]
     Indication: CENTRAL NERVOUS SYSTEM LYMPHOMA
     Dosage: 102 MG, PER DAY
     Route: 041
  2. METHOTREXATE SODIUM [Suspect]
     Indication: CENTRAL NERVOUS SYSTEM LYMPHOMA
     Dosage: 3400 MG PER DAY
     Route: 041
     Dates: start: 20120328

REACTIONS (4)
  - TUMOUR LYSIS SYNDROME [None]
  - BONE MARROW FAILURE [None]
  - DISORIENTATION [None]
  - DRUG LEVEL INCREASED [None]
